FAERS Safety Report 21467314 (Version 1)
Quarter: 2022Q4

REPORT INFORMATION
  Report Type: Report from Study
  Country: US (occurrence: US)
  Receive Date: 20221017
  Receipt Date: 20221017
  Transmission Date: 20230113
  Serious: No
  Sender: FDA-Public Use
  Company Number: US-ABBVIE-4157686

PATIENT
  Sex: Female

DRUGS (10)
  1. SKYRIZI [Suspect]
     Active Substance: RISANKIZUMAB-RZAA
     Indication: Psoriasis
     Dosage: WEEK 4 AND EVERY 12 WEEKS ?FORM STRENGTH: 150 MILLIGRAMS
     Route: 058
     Dates: start: 20220317
  2. VITAMIN D2 10 MCG TABLET [Concomitant]
     Indication: Product used for unknown indication
  3. MODERNA COVID-19 VACCINE [Concomitant]
     Active Substance: ELASOMERAN
     Indication: COVID-19 immunisation
     Dosage: 1 IN ONCE
     Route: 030
  4. BUSPIRONE I-ICL 10 MG TABLET [Concomitant]
     Indication: Product used for unknown indication
  5. SYNTHROID 100 MCG TABLET [Concomitant]
     Indication: Product used for unknown indication
  6. METHOTREXATE (METHOTREXATE SODIUM) [Concomitant]
     Active Substance: METHOTREXATE SODIUM
     Indication: Product used for unknown indication
  7. OMEPRAZOLE 20 MG CAPSULE DR [Concomitant]
     Indication: Product used for unknown indication
     Dosage: DR
  8. MEDROL 4 MG TAB DS PK [Concomitant]
     Indication: Product used for unknown indication
  9. PRISTIQ 100 MG TAB ER 2411 [Concomitant]
     Indication: Product used for unknown indication
     Dosage: ER
  10. NUVIGIL 160 MG TABLET [Concomitant]
     Indication: Product used for unknown indication

REACTIONS (1)
  - Drug ineffective [Not Recovered/Not Resolved]
